FAERS Safety Report 7551440-3 (Version None)
Quarter: 2011Q2

REPORT INFORMATION
  Report Type: 
  Country: None (occurrence: None)
  Receive Date: 20110616
  Receipt Date: 20100116
  Transmission Date: 20111010
  Serious: Yes (Death, Other)
  Sender: FDA-Public Use
  Company Number: US-BAYER-201011394NA

PATIENT
  Age: 46 Year
  Sex: Female
  Weight: 90 kg

DRUGS (10)
  1. ENALAPRIL MALEATE [Concomitant]
     Route: 048
  2. LASIX [Concomitant]
     Route: 048
  3. LOPRESSOR [Concomitant]
     Route: 048
  4. PIPERACILLIN [Concomitant]
     Route: 042
  5. HYDROCHLOROTHIAZIDE [Concomitant]
     Route: 048
  6. TOBRAMYCIN [Concomitant]
  7. ZESTRIL [Concomitant]
     Route: 048
  8. TRASYLOL [Suspect]
     Indication: CORONARY ARTERY BYPASS
     Dates: start: 19970901
  9. CIPROFLOXACIN [Concomitant]
     Route: 048
  10. INSULIN [Concomitant]

REACTIONS (14)
  - UNEVALUABLE EVENT [None]
  - DEPRESSION [None]
  - DEATH [None]
  - ANXIETY [None]
  - RENAL IMPAIRMENT [None]
  - ORGAN FAILURE [None]
  - FEAR [None]
  - ANHEDONIA [None]
  - INJURY [None]
  - CEREBROVASCULAR ACCIDENT [None]
  - RENAL INJURY [None]
  - CARDIAC DISORDER [None]
  - RENAL FAILURE [None]
  - PAIN [None]
